FAERS Safety Report 16742066 (Version 1)
Quarter: 2019Q3

REPORT INFORMATION
  Report Type: Spontaneous
  Country: GB (occurrence: GB)
  Receive Date: 20190826
  Receipt Date: 20190826
  Transmission Date: 20191005
  Serious: Yes (Other)
  Sender: FDA-Public Use
  Company Number: GB-TEVA-2019-GB-1096183

PATIENT
  Age: 27 Year
  Sex: Male
  Weight: 57 kg

DRUGS (6)
  1. CIPROFLOXACIN. [Suspect]
     Active Substance: CIPROFLOXACIN
     Indication: EPIDIDYMITIS
     Dosage: 1000 MG
     Route: 048
     Dates: start: 20190711, end: 20190716
  2. MORPHINE [Concomitant]
     Active Substance: MORPHINE
  3. TRAMADOL. [Concomitant]
     Active Substance: TRAMADOL
  4. FLUCONAZOLE. [Concomitant]
     Active Substance: FLUCONAZOLE
  5. DIHYDROCODEINE [Concomitant]
     Active Substance: DIHYDROCODEINE
  6. DOXYCYCLINE. [Concomitant]
     Active Substance: DOXYCYCLINE

REACTIONS (4)
  - Tendon pain [Recovering/Resolving]
  - Paraesthesia [Not Recovered/Not Resolved]
  - Muscular weakness [Not Recovered/Not Resolved]
  - Arthralgia [Not Recovered/Not Resolved]

NARRATIVE: CASE EVENT DATE: 20190715
